FAERS Safety Report 10377600 (Version 1)
Quarter: 2014Q1

REPORT INFORMATION
  Report Type: Spontaneous
  Country: US (occurrence: None)
  Receive Date: 20140306
  Receipt Date: 20140306
  Transmission Date: 20141002
  Serious: Yes (Hospitalization)
  Sender: FDA-Public Use
  Company Number: 163-21880-13032124

PATIENT
  Age: 85 Year
  Sex: Female

DRUGS (2)
  1. REVLIMID (LENALIDOMIDE) (15 MILLIGRAM, CAPSULES) [Suspect]
     Indication: PLASMA CELL MYELOMA
     Dosage: 15MG, 21 IN 28D, PO
     Route: 048
     Dates: start: 201302, end: 2013
  2. ASA (ACETYLSALICYLIC ACID) [Concomitant]

REACTIONS (3)
  - Acute myocardial infarction [None]
  - Cerebrovascular accident [None]
  - Bradycardia [None]
